FAERS Safety Report 5989214-7 (Version None)
Quarter: 2008Q4

REPORT INFORMATION
  Report Type: 
  Country: None (occurrence: None)
  Receive Date: 20081210
  Receipt Date: 20081203
  Transmission Date: 20090506
  Serious: Yes (Hospitalization)
  Sender: FDA-Public Use
  Company Number: US-BIOGENIDEC-2008BI025686

PATIENT
  Age: 58 Year
  Sex: Female

DRUGS (1)
  1. TYSABRI [Suspect]
     Indication: MULTIPLE SCLEROSIS
     Route: 042
     Dates: start: 20080628

REACTIONS (6)
  - ARTHRALGIA [None]
  - BRONCHITIS [None]
  - CHONDROPATHY [None]
  - JOINT CREPITATION [None]
  - JOINT INJECTION [None]
  - SLEEP APNOEA SYNDROME [None]
